FAERS Safety Report 24385206 (Version 1)
Quarter: 2024Q4

REPORT INFORMATION
  Report Type: Spontaneous
  Country: IN (occurrence: IN)
  Receive Date: 20241001
  Receipt Date: 20241001
  Transmission Date: 20250114
  Serious: Yes (Hospitalization)
  Sender: MYLAN
  Company Number: IN-MYLANLABS-2024M1087558

PATIENT
  Age: 27 Year
  Sex: Female

DRUGS (12)
  1. TRANEXAMIC ACID [Suspect]
     Active Substance: TRANEXAMIC ACID
     Indication: Haemorrhage prophylaxis
     Dosage: 1 GRAM
     Route: 042
  2. OXYTOCIN [Suspect]
     Active Substance: OXYTOCIN
     Indication: Haemorrhage prophylaxis
     Dosage: 20-UNITS
     Route: 065
  3. CEFUROXIME [Suspect]
     Active Substance: CEFUROXIME
     Indication: Antibiotic therapy
     Dosage: 1.5 GRAM
     Route: 042
  4. PANTOPRAZOLE [Suspect]
     Active Substance: PANTOPRAZOLE
     Indication: Product used for unknown indication
     Dosage: 40 MILLIGRAM
     Route: 042
  5. ONDANSETRON [Suspect]
     Active Substance: ONDANSETRON
     Indication: Product used for unknown indication
     Dosage: 4 MILLIGRAM
     Route: 042
  6. CARBETOCIN [Suspect]
     Active Substance: CARBETOCIN
     Indication: Haemorrhage prophylaxis
     Dosage: 100 MICROGRAM
     Route: 065
  7. AMIKACIN [Suspect]
     Active Substance: AMIKACIN
     Indication: Antibiotic therapy
     Dosage: 750 MILLIGRAM
     Route: 042
  8. GLYCOPYRROLATE [Suspect]
     Active Substance: GLYCOPYRROLATE
     Indication: Premedication
     Dosage: 0.005 MILLIGRAM/KILOGRAM
     Route: 065
  9. SUCCINYLCHOLINE CHLORIDE [Suspect]
     Active Substance: SUCCINYLCHOLINE CHLORIDE
     Indication: Premedication
     Dosage: 1-1.5?MG/KG BODY WEIGHT
     Route: 065
  10. THIOPENTAL SODIUM [Suspect]
     Active Substance: THIOPENTAL SODIUM
     Indication: Induction of anaesthesia
     Dosage: 3 MILLIGRAM/KILOGRAM
     Route: 042
  11. SEVOFLURANE [Suspect]
     Active Substance: SEVOFLURANE
     Indication: Maintenance of anaesthesia
     Dosage: 1.0-1.5%
     Route: 065
  12. ATRACURIUM BESYLATE [Suspect]
     Active Substance: ATRACURIUM BESYLATE
     Indication: Maintenance of anaesthesia
     Dosage: 0.3 MILLIGRAM/KILOGRAM
     Route: 042

REACTIONS (2)
  - Maternal exposure during delivery [Recovered/Resolved]
  - Drug ineffective [Unknown]
